FAERS Safety Report 24990760 (Version 2)
Quarter: 2025Q1

REPORT INFORMATION
  Report Type: Report from Study
  Country: ES (occurrence: ES)
  Receive Date: 20250220
  Receipt Date: 20250227
  Transmission Date: 20250409
  Serious: Yes (Other)
  Sender: AVERITAS
  Company Number: ES-GRUNENTHAL-2025-103068

PATIENT
  Age: 81 Year
  Sex: Female

DRUGS (11)
  1. QUTENZA [Suspect]
     Active Substance: CAPSAICIN
     Indication: Neuralgia
     Route: 003
     Dates: start: 20241210, end: 20241210
  2. QUTENZA [Suspect]
     Active Substance: CAPSAICIN
     Indication: Radiation neuropathy
     Route: 003
  3. QUTENZA [Suspect]
     Active Substance: CAPSAICIN
     Route: 003
  4. FENTANYL [Concomitant]
     Active Substance: FENTANYL
     Indication: Arthralgia
     Dosage: UNK, EVERY 3 DAYS
     Route: 065
  5. ALPRAZOLAM [Concomitant]
     Active Substance: ALPRAZOLAM
     Indication: Anxiety
     Dosage: 3 DOSAGE FORM, 1/DAY
     Route: 065
  6. GABAPENTIN [Concomitant]
     Active Substance: GABAPENTIN
     Indication: Arthralgia
     Dosage: 1 DOSAGE FORM, 2/DAY
     Route: 065
  7. DEXKETOPROFEN TROMETAMOL [Concomitant]
     Active Substance: DEXKETOPROFEN TROMETAMOL
     Indication: Arthralgia
     Dosage: 1 DOSAGE FORM, 2/DAY
     Route: 065
  8. EXEMESTANE [Concomitant]
     Active Substance: EXEMESTANE
     Indication: Breast cancer
     Dosage: 1 DOSAGE FORM, 1/DAY
     Route: 065
  9. CALCIPLUS [CALCITONIN, SALMON] [Concomitant]
     Indication: Osteoporosis
     Dosage: UNK, 1/DAY
     Route: 065
  10. ALENDRONIC ACID [Concomitant]
     Active Substance: ALENDRONIC ACID
     Indication: Osteoporosis
     Dosage: UNK, 1/WEEK
     Route: 065
  11. ALENDRONIC ACID [Concomitant]
     Active Substance: ALENDRONIC ACID
     Dosage: UNK, EVERY 3 DAYS
     Route: 065

REACTIONS (2)
  - Product use issue [Unknown]
  - Delirium [Recovered/Resolved]

NARRATIVE: CASE EVENT DATE: 20241210
